FAERS Safety Report 10910968 (Version 1)
Quarter: 2015Q1

REPORT INFORMATION
  Report Type: Spontaneous
  Country: US (occurrence: US)
  Receive Date: 20150312
  Receipt Date: 20150312
  Transmission Date: 20150721
  Serious: No
  Sender: FDA-Public Use
  Company Number: US-GLAXOSMITHKLINE-US2015025606

PATIENT
  Sex: Male

DRUGS (2)
  1. FLOMAX [Concomitant]
     Active Substance: TAMSULOSIN HYDROCHLORIDE
  2. VOTRIENT [Suspect]
     Active Substance: PAZOPANIB HYDROCHLORIDE
     Indication: SOFT TISSUE SARCOMA
     Route: 048
     Dates: start: 20150205

REACTIONS (2)
  - Sinusitis [Not Recovered/Not Resolved]
  - Body temperature increased [Not Recovered/Not Resolved]
